FAERS Safety Report 7543257-0 (Version None)
Quarter: 2011Q2

REPORT INFORMATION
  Report Type: 
  Country: None (occurrence: None)
  Receive Date: 20110613
  Receipt Date: 20110531
  Transmission Date: 20111010
  Serious: Yes (Hospitalization)
  Sender: FDA-Public Use
  Company Number: JP-JNJFOC-20110506899

PATIENT
  Sex: Female
  Weight: 50 kg

DRUGS (8)
  1. FOLIC ACID [Concomitant]
     Indication: PROPHYLAXIS
     Route: 048
     Dates: end: 20110326
  2. REMICADE [Suspect]
     Dosage: 1ST DOSE
     Route: 042
     Dates: start: 20080624
  3. RHEUMATREX [Concomitant]
     Indication: RHEUMATOID ARTHRITIS
     Route: 048
     Dates: start: 20070508, end: 20100410
  4. OMERAN [Concomitant]
     Indication: PROPHYLAXIS
     Route: 048
     Dates: start: 20070605
  5. REMICADE [Suspect]
     Route: 042
     Dates: start: 20091027
  6. REMICADE [Suspect]
     Indication: RHEUMATOID ARTHRITIS
     Dosage: 20TH DOSE
     Route: 042
     Dates: start: 20110315
  7. METHOTREXATE [Suspect]
     Indication: RHEUMATOID ARTHRITIS
     Route: 048
     Dates: start: 20100416, end: 20110324
  8. ETODOLAC [Concomitant]
     Indication: RHEUMATOID ARTHRITIS
     Route: 048
     Dates: start: 20070605

REACTIONS (2)
  - PULMONARY TUBERCULOSIS [None]
  - ALTERED STATE OF CONSCIOUSNESS [None]
